FAERS Safety Report 23924311 (Version 1)
Quarter: 2024Q2

REPORT INFORMATION
  Report Type: Report from Study
  Country: US (occurrence: US)
  Receive Date: 20240531
  Receipt Date: 20240531
  Transmission Date: 20240716
  Serious: No
  Sender: FDA-Public Use
  Company Number: US-ALXN-202405USA001715US

PATIENT

DRUGS (1)
  1. STRENSIQ [Suspect]
     Active Substance: ASFOTASE ALFA
     Indication: Product used for unknown indication
     Dosage: UNK
     Route: 065

REACTIONS (15)
  - Gait disturbance [Unknown]
  - Pain [Unknown]
  - Fatigue [Unknown]
  - Musculoskeletal stiffness [Unknown]
  - Urine ketone body present [Unknown]
  - Back pain [Unknown]
  - Injection site bruising [Recovered/Resolved]
  - Thirst [Unknown]
  - Food allergy [Unknown]
  - Haematocrit increased [Unknown]
  - Blood potassium increased [Unknown]
  - Blood chloride increased [Unknown]
  - Injection site pruritus [Unknown]
  - Increased tendency to bruise [Unknown]
  - Injection site erythema [Unknown]

NARRATIVE: CASE EVENT DATE: 20240516
